FAERS Safety Report 8218585-6 (Version None)
Quarter: 2012Q1

REPORT INFORMATION
  Report Type: 
  Country: None (occurrence: None)
  Receive Date: 20120319
  Receipt Date: 20120309
  Transmission Date: 20120608
  Serious: Yes (Hospitalization, Disabling)
  Sender: FDA-Public Use
  Company Number: US-BAYER-2011-105391

PATIENT
  Age: 36 Year
  Sex: Female
  Weight: 139.23 kg

DRUGS (7)
  1. ZYRTEC [Concomitant]
     Indication: ALLERGIC SINUSITIS
     Dosage: UNK
     Dates: start: 20030101
  2. YAZ [Suspect]
     Indication: PREMENSTRUAL SYNDROME
  3. SYNTHROID [Concomitant]
     Indication: HYPOTHYROIDISM
     Dosage: 75MCG DAILY
     Route: 048
     Dates: start: 20030101
  4. VITAMIN B-12 [Concomitant]
     Dosage: UNK
     Dates: start: 20091108
  5. ALLEGRA [Concomitant]
     Indication: ALLERGIC SINUSITIS
     Dosage: 180 MG, DAILY
     Route: 048
     Dates: start: 20030101
  6. CLARITIN [Concomitant]
     Indication: ALLERGIC SINUSITIS
     Dosage: UNK
     Dates: start: 20030101
  7. YAZ [Suspect]
     Indication: ACNE
     Dosage: UNK
     Route: 048
     Dates: start: 20090501, end: 20091001

REACTIONS (8)
  - ANXIETY [None]
  - DEFORMITY [None]
  - PULMONARY EMBOLISM [None]
  - PAIN [None]
  - ANHEDONIA [None]
  - DYSPNOEA [None]
  - DEEP VEIN THROMBOSIS [None]
  - INJURY [None]
